FAERS Safety Report 4850959-3 (Version None)
Quarter: 2005Q4

REPORT INFORMATION
  Report Type: 
  Country: None (occurrence: None)
  Receive Date: 20051209
  Receipt Date: 20051209
  Transmission Date: 20060501
  Serious: Yes (Hospitalization)
  Sender: FDA-Public Use
  Company Number: None

PATIENT
  Age: 81 Year
  Sex: Male
  Weight: 109 kg

DRUGS (5)
  1. LISINOPRIL [Suspect]
     Indication: CARDIAC FAILURE CONGESTIVE
     Dates: start: 20021122, end: 20050610
  2. LISINOPRIL [Suspect]
     Indication: DIABETES MELLITUS
     Dates: start: 20021122, end: 20050610
  3. LISINOPRIL [Suspect]
     Indication: HYPERTENSION
     Dates: start: 20021122, end: 20050610
  4. LASIX [Suspect]
     Indication: CARDIAC FAILURE CONGESTIVE
     Dates: start: 20040210, end: 20040610
  5. LASIX [Suspect]
     Indication: HYPERTENSION
     Dates: start: 20040210, end: 20040610

REACTIONS (8)
  - ABDOMINAL PAIN [None]
  - ANOREXIA [None]
  - BLOOD CREATININE INCREASED [None]
  - BLOOD POTASSIUM INCREASED [None]
  - FEELING ABNORMAL [None]
  - NAUSEA [None]
  - RENAL FAILURE ACUTE [None]
  - VOMITING [None]
